FAERS Safety Report 5651884-0 (Version None)
Quarter: 2008Q1

REPORT INFORMATION
  Report Type: 
  Country: None (occurrence: None)
  Receive Date: 20080305
  Receipt Date: 20080222
  Transmission Date: 20080703
  Serious: Yes (Other)
  Sender: FDA-Public Use
  Company Number: US-PFIZER INC-2008018715

PATIENT
  Sex: Female
  Weight: 77 kg

DRUGS (6)
  1. CHANTIX [Suspect]
     Indication: SMOKING CESSATION THERAPY
  2. VERAPAMIL [Concomitant]
  3. CLONIDINE [Concomitant]
  4. NEXIUM [Concomitant]
  5. AVALIDE [Concomitant]
  6. ADVAIR DISKUS 100/50 [Concomitant]

REACTIONS (4)
  - ABNORMAL DREAMS [None]
  - INGROWING NAIL [None]
  - INSOMNIA [None]
  - RESTLESSNESS [None]
